FAERS Safety Report 7701962-7 (Version None)
Quarter: 2011Q3

REPORT INFORMATION
  Report Type: 
  Country: None (occurrence: None)
  Receive Date: 20110822
  Receipt Date: 20110812
  Transmission Date: 20111222
  Serious: Yes (Hospitalization)
  Sender: FDA-Public Use
  Company Number: PHHO2011US13910

PATIENT
  Sex: Male
  Weight: 106.58 kg

DRUGS (11)
  1. AVASTIN [Suspect]
  2. AMBIEN [Concomitant]
  3. DOCETAXEL [Suspect]
     Indication: PROSTATE CANCER
     Dosage: 15 MG/KG, UNK
     Dates: start: 20110713, end: 20110803
  4. MESALAMINE [Concomitant]
  5. ARANESP [Concomitant]
  6. COMPAZINE [Concomitant]
     Dosage: UNK
  7. ZOFRAN [Concomitant]
  8. METOPROLOL [Concomitant]
  9. BISMUTH SUBSALICYLATE [Concomitant]
  10. DECADRON [Concomitant]
  11. AFINITOR [Suspect]
     Indication: PROSTATE CANCER
     Dosage: 2.5 MG, UNK
     Route: 048
     Dates: start: 20110711, end: 20110811

REACTIONS (1)
  - FEBRILE NEUTROPENIA [None]
